FAERS Safety Report 6260484-3 (Version None)
Quarter: 2009Q3

REPORT INFORMATION
  Report Type: 
  Country: None (occurrence: None)
  Receive Date: 20090706
  Receipt Date: 20090630
  Transmission Date: 20100115
  Serious: Yes (Death, Hospitalization)
  Sender: FDA-Public Use
  Company Number: 2009SP014310

PATIENT
  Age: 1 Year
  Sex: Female
  Weight: 11 kg

DRUGS (4)
  1. CELESTENE (BETAMETHASONE) (BETAMETHASONE) [Suspect]
     Indication: DYSPNOEA
     Dosage: 165 GTT; ONCE; PO
     Route: 048
     Dates: start: 20090503, end: 20090503
  2. PREVENAR (PNEUMOCOCCAL CONJUGATE VACCINE) [Suspect]
     Indication: VACCINIA VIRUS INFECTION
     Dosage: INTRAMUSCULAR
     Route: 030
     Dates: start: 20080416
  3. PREVENAR (PNEUMOCOCCAL CONJUGATE VACCINE) [Suspect]
     Indication: VACCINIA VIRUS INFECTION
     Dosage: INTRAMUSCULAR
     Route: 030
     Dates: start: 20080604
  4. PREVENAR (PNEUMOCOCCAL CONJUGATE VACCINE) [Suspect]
     Indication: VACCINIA VIRUS INFECTION
     Dosage: INTRAMUSCULAR
     Route: 030
     Dates: start: 20090429

REACTIONS (9)
  - CARDIAC ARREST [None]
  - DYSPNOEA [None]
  - HYPOXIA [None]
  - MYOCARDITIS [None]
  - PARVOVIRUS INFECTION [None]
  - RESPIRATORY TRACT INFECTION VIRAL [None]
  - SUDDEN INFANT DEATH SYNDROME [None]
  - VIRAL MYOCARDITIS [None]
  - VOMITING [None]
